FAERS Safety Report 25015851 (Version 1)
Quarter: 2025Q1

REPORT INFORMATION
  Report Type: Spontaneous
  Country: US (occurrence: US)
  Receive Date: 20250227
  Receipt Date: 20250227
  Transmission Date: 20250409
  Serious: No
  Sender: AMGEN
  Company Number: US-AMGEN-USASP2025035685

PATIENT
  Age: 51 Year
  Sex: Female

DRUGS (5)
  1. AMJEVITA [Suspect]
     Active Substance: ADALIMUMAB-ATTO
     Indication: Uveitis
     Route: 065
     Dates: start: 20250204, end: 20250211
  2. POLYTRIM [Concomitant]
     Active Substance: POLYMYXIN B SULFATE\TRIMETHOPRIM SULFATE
  3. IBUPROFEN [Concomitant]
     Active Substance: IBUPROFEN
  4. PRED FORTE [Concomitant]
     Active Substance: PREDNISOLONE ACETATE
  5. DUREZOL [Concomitant]
     Active Substance: DIFLUPREDNATE

REACTIONS (4)
  - Erythema [Unknown]
  - Feeling hot [Unknown]
  - Pruritus [Unknown]
  - Rash [Unknown]

NARRATIVE: CASE EVENT DATE: 20250201
